FAERS Safety Report 6680375-3 (Version None)
Quarter: 2010Q2

REPORT INFORMATION
  Report Type: 
  Country: None (occurrence: None)
  Receive Date: 20100412
  Receipt Date: 20100312
  Transmission Date: 20101027
  Serious: Yes (Other)
  Sender: FDA-Public Use
  Company Number: 20108420

PATIENT
  Sex: Female

DRUGS (1)
  1. LIORESAL [Suspect]
     Indication: MUSCLE SPASTICITY
     Dosage: 599.2 MCG, DAILY INTRATHECAL
     Route: 037

REACTIONS (3)
  - IRRITABILITY [None]
  - MUSCULOSKELETAL STIFFNESS [None]
  - WITHDRAWAL SYNDROME [None]
